FAERS Safety Report 5128580-1 (Version None)
Quarter: 2006Q4

REPORT INFORMATION
  Report Type: 
  Country: None (occurrence: None)
  Receive Date: 20061017
  Receipt Date: 20061006
  Transmission Date: 20070319
  Serious: Yes (Life-Threatening, Hospitalization)
  Sender: FDA-Public Use
  Company Number: JP-JPN-A200604093

PATIENT
  Age: 90 Year
  Sex: Female
  Weight: 34 kg

DRUGS (8)
  1. VALTREX [Suspect]
     Indication: HERPES ZOSTER
     Dosage: 1000MG THREE TIMES PER DAY
     Route: 048
     Dates: start: 20060922, end: 20060924
  2. KETAS [Concomitant]
     Indication: CEREBRAL INFARCTION
     Dosage: 30MG PER DAY
     Route: 048
     Dates: start: 20000613
  3. ALOSENN [Concomitant]
     Indication: CONSTIPATION
     Dosage: .5G PER DAY
     Route: 048
  4. LAC B [Concomitant]
     Indication: DYSPEPSIA
     Dosage: 2.1G PER DAY
     Route: 048
     Dates: end: 20060924
  5. MAGNESIUM OXIDE [Concomitant]
     Indication: DYSPEPSIA
     Dosage: 1.2G PER DAY
     Route: 048
  6. EXCELASE [Concomitant]
     Indication: DYSPEPSIA
     Route: 048
  7. APONOL [Concomitant]
     Indication: CEREBRAL INFARCTION
     Route: 048
  8. LEVOTHYROXINE SODIUM [Concomitant]

REACTIONS (11)
  - ABNORMAL BEHAVIOUR [None]
  - AGGRESSION [None]
  - APHASIA [None]
  - BLOOD CREATININE INCREASED [None]
  - BLOOD UREA INCREASED [None]
  - CONFUSIONAL STATE [None]
  - DEPRESSED LEVEL OF CONSCIOUSNESS [None]
  - ENCEPHALOPATHY [None]
  - PYURIA [None]
  - RENAL FAILURE ACUTE [None]
  - SCREAMING [None]
